FAERS Safety Report 7563714-0 (Version None)
Quarter: 2011Q2

REPORT INFORMATION
  Report Type: 
  Country: None (occurrence: None)
  Receive Date: 20110622
  Receipt Date: 20110615
  Transmission Date: 20111010
  Serious: Yes (Hospitalization)
  Sender: FDA-Public Use
  Company Number: JP-MERCK-1106USA02407

PATIENT
  Age: 70 Year
  Sex: Female

DRUGS (5)
  1. FEBUXOSTAT [Suspect]
     Indication: HYPERURICAEMIA
     Route: 048
     Dates: start: 20110606
  2. PLAVIX [Concomitant]
     Route: 048
  3. MICARDIS [Concomitant]
     Route: 048
  4. CRESTOR [Concomitant]
     Route: 048
  5. FOSAMAX [Suspect]
     Route: 048

REACTIONS (1)
  - HEPATITIS ACUTE [None]
